FAERS Safety Report 20585313 (Version 1)
Quarter: 2022Q1

REPORT INFORMATION
  Report Type: Spontaneous
  Country: GB (occurrence: GB)
  Receive Date: 20220312
  Receipt Date: 20220312
  Transmission Date: 20220423
  Serious: Yes (Hospitalization, Other)
  Sender: FDA-Public Use
  Company Number: GB-BRISTOL-MYERS SQUIBB COMPANY-BMS-2022-033117

PATIENT
  Age: 35 Year
  Sex: Male

DRUGS (2)
  1. IPILIMUMAB [Suspect]
     Active Substance: IPILIMUMAB
     Indication: Mesothelioma
     Dosage: 1 MILLIGRAM/KILOGRAM, Q6WK
     Route: 065
     Dates: start: 202003
  2. PEMBROLIZUMAB [Suspect]
     Active Substance: PEMBROLIZUMAB
     Indication: Mesothelioma
     Dosage: 2 MILLIGRAM/KILOGRAM, Q3WK
     Route: 065
     Dates: start: 202003

REACTIONS (3)
  - Cutaneous vasculitis [Unknown]
  - Peripheral ischaemia [Unknown]
  - Dry gangrene [Unknown]

NARRATIVE: CASE EVENT DATE: 20200501
